FAERS Safety Report 7468533-1 (Version None)
Quarter: 2011Q2

REPORT INFORMATION
  Report Type: 
  Country: None (occurrence: None)
  Receive Date: 20110509
  Receipt Date: 20110502
  Transmission Date: 20111010
  Serious: Yes (Hospitalization)
  Sender: FDA-Public Use
  Company Number: IT-KINGPHARMUSA00001-K201100479

PATIENT
  Sex: Male

DRUGS (10)
  1. PANTORC [Concomitant]
     Dosage: 40 MG, UNK
     Route: 048
  2. NORVASC [Suspect]
     Indication: CARDIAC FAILURE
     Dosage: 1 DF, QD
     Route: 048
     Dates: start: 20110321
  3. ALTACE [Suspect]
     Indication: CARDIAC FAILURE
     Dosage: 2 DF, QD
     Route: 048
     Dates: start: 20110321, end: 20110401
  4. ALDACTONE [Suspect]
     Indication: CARDIAC FAILURE
     Dosage: 1 DF, QD
     Route: 048
     Dates: start: 20110321, end: 20110401
  5. ASPIRIN [Concomitant]
     Dosage: 1 DF, QD
  6. BISOPROLOL FUMARATE [Suspect]
     Indication: CARDIAC FAILURE
     Dosage: 2 DF, QD
     Route: 048
     Dates: start: 20110321, end: 20110401
  7. PLAVIX [Concomitant]
  8. ALLOPURINOL [Concomitant]
     Dosage: 150 MG, QD
  9. LASIX [Suspect]
     Indication: CARDIAC FAILURE
     Dosage: 3 DF, QD
     Route: 048
     Dates: start: 20110321
  10. POTASSIUM CHLORIDE [Suspect]
     Indication: CARDIAC FAILURE
     Dosage: 4 DF, QD
     Route: 048
     Dates: start: 20110321, end: 20110401

REACTIONS (3)
  - HYPERKALAEMIA [None]
  - SINUS BRADYCARDIA [None]
  - RENAL FAILURE ACUTE [None]
